FAERS Safety Report 21726787 (Version 3)
Quarter: 2023Q1

REPORT INFORMATION
  Report Type: Report from Study
  Country: SA (occurrence: SA)
  Receive Date: 20221214
  Receipt Date: 20230308
  Transmission Date: 20230418
  Serious: Yes (Other)
  Sender: FDA-Public Use
  Company Number: SA-GLAXOSMITHKLINE-SA2021EME219699

PATIENT

DRUGS (1)
  1. BELIMUMAB [Suspect]
     Active Substance: BELIMUMAB
     Indication: Systemic lupus erythematosus
     Dosage: 10 MG/KG, Z MONTHLY
     Route: 042
     Dates: start: 20201208

REACTIONS (16)
  - Leukopenia [Not Recovered/Not Resolved]
  - Oropharyngeal pain [Not Recovered/Not Resolved]
  - Pyrexia [Not Recovered/Not Resolved]
  - Stomatitis [Not Recovered/Not Resolved]
  - Chest pain [Unknown]
  - Dermatitis [Unknown]
  - Rash [Unknown]
  - Ill-defined disorder [Unknown]
  - Alopecia [Recovered/Resolved]
  - Dyspnoea [Recovered/Resolved]
  - Influenza [Recovered/Resolved]
  - Cough [Recovered/Resolved]
  - Symptom recurrence [Unknown]
  - Food allergy [Not Recovered/Not Resolved]
  - Inappropriate schedule of product administration [Not Recovered/Not Resolved]
  - Product dose omission issue [Not Recovered/Not Resolved]

NARRATIVE: CASE EVENT DATE: 20210112
